FAERS Safety Report 9575244 (Version 7)
Quarter: 2014Q4

REPORT INFORMATION
  Report Type: Spontaneous
  Country: JP (occurrence: JP)
  Receive Date: 20131001
  Receipt Date: 20141106
  Transmission Date: 20150529
  Serious: Yes (Other)
  Sender: FDA-Public Use
  Company Number: JP-GLAXOSMITHKLINE-B0912593A

PATIENT

DRUGS (8)
  1. FUROSEMIDE. [Concomitant]
     Active Substance: FUROSEMIDE
     Indication: ASCITES
     Route: 048
  2. LAMIVUDINE. [Suspect]
     Active Substance: LAMIVUDINE
     Indication: CHRONIC HEPATITIS B
     Route: 048
     Dates: start: 2002
  3. GAMOFA [Concomitant]
     Active Substance: FAMOTIDINE
     Indication: CHRONIC GASTRITIS
     Route: 048
  4. ADEFOVIR DIPIVOXIL. [Suspect]
     Active Substance: ADEFOVIR DIPIVOXIL
     Indication: CHRONIC HEPATITIS B
     Dosage: UNK
     Dates: start: 1998
  5. ADEFOVIR DIPIVOXIL. [Suspect]
     Active Substance: ADEFOVIR DIPIVOXIL
     Route: 048
     Dates: start: 2003, end: 201302
  6. ADEFOVIR DIPIVOXIL. [Suspect]
     Active Substance: ADEFOVIR DIPIVOXIL
     Route: 048
     Dates: start: 201302
  7. URSO [Concomitant]
     Active Substance: URSODIOL
     Indication: CHOLELITHIASIS
     Route: 048
  8. LIVACT [Concomitant]
     Active Substance: AMINO ACIDS
     Indication: HYPOALBUMINAEMIA
     Route: 048

REACTIONS (26)
  - Blood alkaline phosphatase increased [Unknown]
  - Glucose urine present [Unknown]
  - Fanconi syndrome [Recovering/Resolving]
  - Bone marrow failure [Unknown]
  - Tibia fracture [Unknown]
  - Back pain [Unknown]
  - Multiple fractures [Recovering/Resolving]
  - Hepatocellular carcinoma [Recovered/Resolved]
  - Hepatocellular carcinoma [Recovered/Resolved]
  - Musculoskeletal pain [Unknown]
  - Renal impairment [Recovering/Resolving]
  - Arthralgia [Unknown]
  - Hypophosphataemia [Recovering/Resolving]
  - Pain [Recovering/Resolving]
  - Proteinuria [Unknown]
  - Osteomalacia [Recovering/Resolving]
  - Chest pain [Unknown]
  - Fractured sacrum [Unknown]
  - Hypokalaemia [Recovering/Resolving]
  - Gait disturbance [Unknown]
  - Vitamin D decreased [Unknown]
  - Urine phosphorus decreased [Unknown]
  - Tibia fracture [Unknown]
  - Pelvic fracture [Unknown]
  - Arthralgia [Recovering/Resolving]
  - Bone pain [Unknown]

NARRATIVE: CASE EVENT DATE: 200302
